FAERS Safety Report 6098752-0 (Version None)
Quarter: 2009Q1

REPORT INFORMATION
  Report Type: 
  Country: None (occurrence: None)
  Receive Date: 20090302
  Receipt Date: 20090218
  Transmission Date: 20090719
  Serious: Yes (Hospitalization)
  Sender: FDA-Public Use
  Company Number: GB-PFIZER INC-2009176593

PATIENT

DRUGS (1)
  1. DIFLUCAN [Suspect]
     Indication: CANDIDIASIS
     Dosage: FREQUENCY:ONCE
     Route: 048
     Dates: start: 20080408, end: 20080408

REACTIONS (1)
  - RETAINED PLACENTA OR MEMBRANES [None]
